FAERS Safety Report 15949003 (Version 2)
Quarter: 2019Q1

REPORT INFORMATION
  Report Type: Report from Study
  Country: None (occurrence: US)
  Receive Date: 20190211
  Receipt Date: 20190320
  Transmission Date: 20190417
  Serious: Yes (Hospitalization, Other)
  Sender: FDA-Public Use
  Company Number: US-ABBVIE-19K-163-2653969-00

PATIENT
  Age: 78 Year
  Sex: Male
  Weight: 99.88 kg

DRUGS (20)
  1. ADVIL LIQUI GELS [Concomitant]
     Indication: PYREXIA
     Dosage: 1 OR 2 EACH 6 HOURS AS NEEDED
  2. SYNTHROID [Concomitant]
     Active Substance: LEVOTHYROXINE SODIUM
     Indication: THYROID THERAPY
     Dosage: 200 MG +25 MG 1 EACH TABS 1 AT DAY AM
  3. METOPROLOL TARTRAS [Concomitant]
     Indication: HYPERTENSION
     Dosage: AT AM
  4. MUCINEX [Concomitant]
     Active Substance: GUAIFENESIN
     Indication: PRODUCT USED FOR UNKNOWN INDICATION
     Dosage: 1/2 TAB AT DAY AT NIGHT PM
  5. CLOPIDOGREL [Concomitant]
     Active Substance: CLOPIDOGREL BISULFATE
     Indication: ANTICOAGULANT THERAPY
     Dosage: AUR 1 AT DAY AM
  6. HYDROCHLOROTHIAZIDE. [Concomitant]
     Active Substance: HYDROCHLOROTHIAZIDE
     Indication: FLUID RETENTION
     Dosage: 1/2 TAB AT DAY AM
  7. FLOVENT HFA [Concomitant]
     Active Substance: FLUTICASONE PROPIONATE
     Indication: ASTHMA PROPHYLAXIS
     Dosage: LNH 12GM 110 MCG 2 PUFFS TWICE A DAY
  8. IPRATROPIUM BROMIDE AND ALBUTEROL SULFATE [Concomitant]
     Active Substance: ALBUTEROL SULFATE\IPRATROPIUM BROMIDE
     Indication: ANTICHOLINERGIC SYNDROME
     Dosage: SOLUTION USING A NEBULIZER UP TO 4 TIMES A DAY AS NEEDED
     Route: 055
  9. ASPIRIN. [Concomitant]
     Active Substance: ASPIRIN
     Indication: THROMBOSIS
     Dosage: 1 AT AM AND A AT PM
  10. METFORMIN ER [Concomitant]
     Active Substance: METFORMIN HYDROCHLORIDE
     Indication: BLOOD GLUCOSE ABNORMAL
     Dosage: AMN 3 AT DAY 2AM/1PM
  11. TUDORZA [Concomitant]
     Active Substance: ACLIDINIUM BROMIDE
     Indication: CHRONIC OBSTRUCTIVE PULMONARY DISEASE
     Dosage: PRES 400/ACT AR FOR 1 PUFF TWICE AT DAY AM/PM
  12. EQUATE ARTIFICIAL TEARS [Concomitant]
     Active Substance: GLYCERIN\HYPROMELLOSES\POLYETHYLENE GLYCOL 400
     Indication: DRY EYE
     Dosage: LUBRICANT EYE DROPS 1 DROP EACH EYE 1 AT DAY IN MORNING
  13. ADVAIR HFA [Concomitant]
     Active Substance: FLUTICASONE PROPIONATE\SALMETEROL XINAFOATE
     Indication: ASTHMA PROPHYLAXIS
     Dosage: 15/21 AEROSOL 2 PUFFS 2 IN DAY AM/PM
  14. PROVENTIL HFA [Concomitant]
     Active Substance: ALBUTEROL SULFATE
     Indication: HYPOTONIA
     Dosage: AER 2 PUFFS TWICE A DAY AS NEEDED
  15. ADVIL LIQUI GELS [Concomitant]
     Indication: PAIN
  16. NITROSTAT [Concomitant]
     Active Substance: NITROGLYCERIN
     Indication: CARDIOVASCULAR EVENT PROPHYLAXIS
     Dosage: 1/150GR 0.4MG 25 S 1 TAB AS NEEDED
  17. HUMIRA [Suspect]
     Active Substance: ADALIMUMAB
     Indication: PSORIASIS
     Route: 058
  18. DULOXETINE. [Concomitant]
     Active Substance: DULOXETINE
     Indication: ANTIDEPRESSANT THERAPY
     Dosage: AT AM
  19. ATORVASTATIN [Concomitant]
     Active Substance: ATORVASTATIN
     Indication: BLOOD CHOLESTEROL ABNORMAL
     Dosage: AT DAY AM
  20. GABAPENTIN. [Concomitant]
     Active Substance: GABAPENTIN
     Indication: NEUROPATHY PERIPHERAL
     Dosage: AMN 2 TIMES AT DAY AM/PM

REACTIONS (9)
  - Pulmonary oedema [Unknown]
  - Respiratory tract congestion [Unknown]
  - Hypotension [Unknown]
  - Myocardial infarction [Unknown]
  - Somnolence [Unknown]
  - Productive cough [Unknown]
  - Respiratory disorder [Unknown]
  - Cardiac dysfunction [Unknown]
  - Immunodeficiency [Recovered/Resolved]
